FAERS Safety Report 10347164 (Version 1)
Quarter: 2014Q3

REPORT INFORMATION
  Report Type: Spontaneous
  Country: US (occurrence: US)
  Receive Date: 20140729
  Receipt Date: 20140729
  Transmission Date: 20150326
  Serious: Yes (Other)
  Sender: FDA-Public Use
  Company Number: US-AMGEN-USASP2014055684

PATIENT
  Age: 84 Year
  Sex: Female

DRUGS (5)
  1. DOXYL [Concomitant]
     Indication: UTERINE CANCER
     Dosage: UNK
  2. NEULASTA [Suspect]
     Active Substance: PEGFILGRASTIM
     Indication: PRODUCT USED FOR UNKNOWN INDICATION
     Dosage: UNK
     Route: 065
  3. NEUPOGEN [Suspect]
     Active Substance: FILGRASTIM
     Indication: PRODUCT USED FOR UNKNOWN INDICATION
     Dosage: UNK
     Route: 065
  4. CARBOPLATIN. [Concomitant]
     Active Substance: CARBOPLATIN
     Indication: UTERINE CANCER
     Dosage: UNK
  5. TAXOL [Concomitant]
     Active Substance: PACLITAXEL
     Indication: UTERINE CANCER
     Dosage: UNK

REACTIONS (13)
  - Metastases to pelvis [Unknown]
  - Condition aggravated [Unknown]
  - Neoplasm progression [Unknown]
  - Feeling abnormal [Unknown]
  - Metastases to lung [Unknown]
  - Abdominal pain upper [Unknown]
  - Carbohydrate antigen 125 increased [Unknown]
  - Metastases to abdominal cavity [Unknown]
  - Malaise [Unknown]
  - Vomiting [Unknown]
  - Proctalgia [Unknown]
  - Pulmonary mass [Unknown]
  - Vaginal neoplasm [Unknown]
